FAERS Safety Report 9801794 (Version 2)
Quarter: 2014Q1

REPORT INFORMATION
  Report Type: Report from Study
  Country: GB (occurrence: GB)
  Receive Date: 20140107
  Receipt Date: 20140110
  Transmission Date: 20141002
  Serious: Yes (Hospitalization)
  Sender: FDA-Public Use
  Company Number: GB-GLAXOSMITHKLINE-B0957264A

PATIENT
  Age: 68 Year
  Sex: Male
  Weight: 77.7 kg

DRUGS (2)
  1. PAZOPANIB [Suspect]
     Indication: RENAL CELL CARCINOMA
  2. DEXAMETHASONE [Concomitant]
     Dosage: 6MG PER DAY
     Route: 048
     Dates: start: 20131226

REACTIONS (2)
  - Confusional state [Not Recovered/Not Resolved]
  - Mobility decreased [Not Recovered/Not Resolved]
